FAERS Safety Report 12408060 (Version 3)
Quarter: 2016Q2

REPORT INFORMATION
  Report Type: Spontaneous
  Country: BR (occurrence: BR)
  Receive Date: 20160525
  Receipt Date: 20160613
  Transmission Date: 20160815
  Serious: Yes (Death, Other)
  Sender: FDA-Public Use
  Company Number: BR-TORRENT-00003440

PATIENT
  Age: 81 Year
  Sex: Female
  Weight: 45 kg

DRUGS (2)
  1. EPEZ [Suspect]
     Active Substance: DONEPEZIL HYDROCHLORIDE
     Indication: DEMENTIA ALZHEIMER^S TYPE
     Dosage: ONCE DAILY/ ORAL
     Route: 048
     Dates: start: 2012, end: 20160512
  2. PROLOPA [Concomitant]
     Active Substance: BENSERAZIDE\LEVODOPA
     Indication: PARKINSON^S DISEASE
     Dosage: DOSE NUMBER IS UNKNOWN/ TWICE DAILY/ ORAL
     Route: 048
     Dates: start: 2011

REACTIONS (2)
  - Respiratory failure [Fatal]
  - Pneumonia bacterial [Fatal]
